FAERS Safety Report 7766120-9 (Version None)
Quarter: 2011Q3

REPORT INFORMATION
  Report Type: 
  Country: None (occurrence: None)
  Receive Date: 20110921
  Receipt Date: 20110912
  Transmission Date: 20111222
  Serious: Yes (Other)
  Sender: FDA-Public Use
  Company Number: US-ASTRAZENECA-2011SE54868

PATIENT
  Age: 85 Year
  Sex: Female

DRUGS (1)
  1. NEXIUM [Suspect]
     Route: 048

REACTIONS (5)
  - FATIGUE [None]
  - MALAISE [None]
  - GINGIVAL INFECTION [None]
  - APHAGIA [None]
  - HYPERHIDROSIS [None]
